FAERS Safety Report 5928416-2 (Version None)
Quarter: 2008Q4

REPORT INFORMATION
  Report Type: 
  Country: None (occurrence: None)
  Receive Date: 20081020
  Receipt Date: 20081013
  Transmission Date: 20090506
  Serious: Yes (Death)
  Sender: FDA-Public Use
  Company Number: 2008SP016939

PATIENT
  Age: 50 Year
  Sex: Male

DRUGS (4)
  1. POSACONAZOLE [Suspect]
     Indication: FUNGAL INFECTION
     Dosage: 400 MG; BID; PO
     Route: 048
     Dates: start: 20051026, end: 20060118
  2. KEPPRA [Concomitant]
  3. AMPHOTERICIN B [Concomitant]
  4. CANDESARTAN CILEXETIL [Concomitant]

REACTIONS (2)
  - METASTASES TO LYMPH NODES [None]
  - SQUAMOUS CELL CARCINOMA OF SKIN [None]
